FAERS Safety Report 21178519 (Version 1)
Quarter: 2022Q3

REPORT INFORMATION
  Report Type: Spontaneous
  Country: US (occurrence: None)
  Receive Date: 20220805
  Receipt Date: 20220805
  Transmission Date: 20221027
  Serious: Yes (Other)
  Sender: FDA-Public Use
  Company Number: None

PATIENT
  Age: 64 Year
  Sex: Female
  Weight: 78.75 kg

DRUGS (3)
  1. MAGNESIUM CITRATE [Suspect]
     Active Substance: MAGNESIUM CITRATE
     Indication: Colonoscopy
     Dosage: OTHER QUANTITY : 10 BOTTLE;?OTHER FREQUENCY : ENTIRE BOTTLE;?
     Route: 048
     Dates: start: 20220627, end: 20220627
  2. IBUPROFEN [Concomitant]
     Active Substance: IBUPROFEN
  3. tylenol, none 2 wks. prior to procedure on 6/27/2022 [Concomitant]

REACTIONS (5)
  - Recalled product administered [None]
  - Product contamination [None]
  - Abdominal pain upper [None]
  - Vomiting [None]
  - Malaise [None]

NARRATIVE: CASE EVENT DATE: 20220627
